FAERS Safety Report 25535567 (Version 1)
Quarter: 2025Q3

REPORT INFORMATION
  Report Type: Spontaneous
  Country: US (occurrence: None)
  Receive Date: 20250709
  Receipt Date: 20250709
  Transmission Date: 20251020
  Serious: Yes (Hospitalization)
  Sender: FDA-CTU
  Company Number: None

PATIENT
  Sex: Female

DRUGS (1)
  1. LENALIDOMIDE [Suspect]
     Active Substance: LENALIDOMIDE
     Indication: Plasma cell myeloma
     Dosage: 5 MG DAILY ORAL
     Route: 048
     Dates: start: 20240105

REACTIONS (6)
  - Pneumonia [None]
  - Urinary tract infection [None]
  - Muscular weakness [None]
  - Fall [None]
  - Transfusion [None]
  - Therapy interrupted [None]
